FAERS Safety Report 7681297-1 (Version None)
Quarter: 2011Q3

REPORT INFORMATION
  Report Type: 
  Country: None (occurrence: None)
  Receive Date: 20110812
  Receipt Date: 20110809
  Transmission Date: 20111222
  Serious: Yes (Hospitalization, Other)
  Sender: FDA-Public Use
  Company Number: US-ABBOTT-11P-163-0845132-00

PATIENT
  Sex: Male

DRUGS (3)
  1. HUMIRA [Suspect]
     Indication: CROHN'S DISEASE
     Dates: start: 20100501, end: 20110101
  2. UNKNOWN DIABETIC MEDICATION [Concomitant]
     Indication: DIABETES MELLITUS
  3. VITAMIN TAB [Concomitant]
     Indication: VITAMIN SUPPLEMENTATION

REACTIONS (7)
  - LUNG DISORDER [None]
  - PRECANCEROUS CELLS PRESENT [None]
  - RESPIRATORY TRACT INFECTION [None]
  - ABDOMINAL PAIN [None]
  - GAIT DISTURBANCE [None]
  - ASTHENIA [None]
  - UNEVALUABLE EVENT [None]
